FAERS Safety Report 9012275 (Version 1)
Quarter: 2013Q1

REPORT INFORMATION
  Report Type: Spontaneous
  Country: GB (occurrence: GB)
  Receive Date: 20130114
  Receipt Date: 20130114
  Transmission Date: 20140127
  Serious: Yes (Hospitalization)
  Sender: FDA-Public Use
  Company Number: GB-TEVA-378336ISR

PATIENT
  Age: 66 Year
  Sex: Female
  Weight: 64.6 kg

DRUGS (15)
  1. VINCRISTINE [Suspect]
     Indication: B-CELL LYMPHOMA
     Route: 040
     Dates: start: 20120816
  2. RITUXIMAB [Suspect]
     Indication: B-CELL LYMPHOMA
     Dosage: 1.28 MG/ML
     Route: 042
     Dates: start: 20120815
  3. PREDNISONE [Suspect]
     Indication: PRODUCT USED FOR UNKNOWN INDICATION
     Route: 048
     Dates: start: 20120816
  4. CYCLOPHOSPHAMIDE [Suspect]
     Indication: B-CELL LYMPHOMA
     Route: 042
     Dates: start: 20120816
  5. CHLORPHENIRAMINE MALEATE [Concomitant]
     Indication: PRODUCT USED FOR UNKNOWN INDICATION
  6. ALLOPURINOL [Concomitant]
     Indication: TUMOUR LYSIS SYNDROME
     Dates: start: 20111010, end: 20111215
  7. METOCLOPRAMIDE [Concomitant]
     Indication: VOMITING
     Dates: start: 20111101, end: 20111101
  8. HYDROCORTISONE [Concomitant]
     Indication: PRODUCT USED FOR UNKNOWN INDICATION
     Dates: start: 20111101, end: 20111101
  9. PARACETAMOL [Concomitant]
     Indication: PRODUCT USED FOR UNKNOWN INDICATION
     Dates: start: 20111010
  10. SENNA [Concomitant]
     Indication: CONSTIPATION
     Dates: start: 20111010, end: 20120308
  11. OMEPRAZOLE [Concomitant]
     Indication: DYSPEPSIA
     Dates: start: 20111010, end: 20120308
  12. ONDANSETRON [Concomitant]
     Indication: NAUSEA
     Dates: start: 20111011
  13. VORICONAZOLE [Concomitant]
     Indication: FUNGAL INFECTION
     Dates: start: 20121012, end: 20121019
  14. DOXYCYCLINE [Concomitant]
     Indication: PNEUMONIA
     Dates: start: 20121012, end: 20121019
  15. ACYCLOVIR [Concomitant]
     Indication: MOUTH ULCERATION
     Dates: start: 20120921

REACTIONS (4)
  - Pleural effusion [Recovered/Resolved]
  - Neutropenic sepsis [Recovered/Resolved]
  - Pneumonia fungal [Recovered/Resolved]
  - Infusion related reaction [Recovered/Resolved]
